FAERS Safety Report 6453442-7 (Version None)
Quarter: 2009Q4

REPORT INFORMATION
  Report Type: 
  Country: None (occurrence: None)
  Receive Date: 20091124
  Receipt Date: 20091119
  Transmission Date: 20100525
  Serious: Yes (Other)
  Sender: FDA-Public Use
  Company Number: US-RB-024126-09

PATIENT
  Age: 30 Year
  Sex: Female

DRUGS (3)
  1. SUBOXONE [Suspect]
     Indication: DRUG USE FOR UNKNOWN INDICATION
     Route: 060
     Dates: start: 20060101, end: 20090501
  2. SUBOXONE [Suspect]
     Route: 060
     Dates: start: 20090601
  3. SUBOXONE [Suspect]
     Dosage: CALLER STATES SHE BEEN ON AND OFF SUBOXONE FOR 3 YEARS, STOPS WHEN SHE CANNOT AFFORD IT
     Route: 065

REACTIONS (3)
  - CERVIX CARCINOMA [None]
  - DRUG WITHDRAWAL SYNDROME [None]
  - VOMITING [None]
